FAERS Safety Report 5958510-1 (Version None)
Quarter: 2008Q4

REPORT INFORMATION
  Report Type: 
  Country: None (occurrence: None)
  Receive Date: 20081119
  Receipt Date: 20081110
  Transmission Date: 20090506
  Serious: Yes (Hospitalization, Other)
  Sender: FDA-Public Use
  Company Number: PHHY2008DE27904

PATIENT
  Sex: Male

DRUGS (10)
  1. LEPONEX [Suspect]
     Indication: SCHIZOPHRENIA
     Dosage: UNK
     Route: 048
     Dates: start: 20000101, end: 20060101
  2. LEPONEX [Suspect]
     Dosage: 12.5 - 300 MG DAILY
     Route: 048
     Dates: start: 20080604, end: 20080706
  3. LEPONEX [Suspect]
     Dosage: 275 MG DAILY
     Route: 048
     Dates: start: 20080707, end: 20080724
  4. ERGENYL ^LABAZ^ [Concomitant]
     Dosage: 1800 MG DAILY
     Route: 048
  5. CIPRAMIL [Concomitant]
     Dosage: 20 MG DAILY
     Route: 048
     Dates: start: 20080529, end: 20080708
  6. CIPRAMIL [Concomitant]
     Dosage: 40 MG DAILY
     Route: 048
     Dates: start: 20080709, end: 20080725
  7. TRUXAL [Concomitant]
     Dosage: 100 MG DAILY
     Route: 048
     Dates: start: 20070201, end: 20080725
  8. DELIX PLUS [Concomitant]
     Dosage: 5/25 MG DAILY
     Route: 048
  9. CEDUR [Concomitant]
     Dosage: 400 MG DAILY
     Route: 048
  10. BELOC-ZOK [Concomitant]
     Dosage: 190 MG DAILY
     Route: 048

REACTIONS (5)
  - LEUKOPENIA [None]
  - MYELOCYTE PRESENT [None]
  - NEUTROPENIA [None]
  - PLASMA CELLS PRESENT [None]
  - RED BLOOD CELL ABNORMALITY [None]
